FAERS Safety Report 4267214-5 (Version None)
Quarter: 2004Q1

REPORT INFORMATION
  Report Type: 
  Country: None (occurrence: None)
  Receive Date: 20040107
  Receipt Date: 20031211
  Transmission Date: 20041129
  Serious: Yes (Hospitalization)
  Sender: FDA-Public Use
  Company Number: A02200303415

PATIENT
  Age: 23 Year
  Sex: Male

DRUGS (7)
  1. XATRAL - (ALFUZOSIN) - TABLET - 5 MG [Suspect]
     Dosage: 10 MG
     Route: 048
     Dates: start: 20030916, end: 20030929
  2. STILNOX [Suspect]
     Dosage: 10 MG OD
     Route: 048
     Dates: start: 20030915
  3. PHENOBARBITAL SRT [Suspect]
     Dosage: 100 MG OD
     Route: 048
     Dates: end: 20030929
  4. OMEPRAZOLE [Suspect]
     Dosage: 40 MG
     Route: 048
     Dates: start: 20030915, end: 20030929
  5. XANAX [Suspect]
     Dosage: 0.5 MG
     Route: 048
     Dates: start: 20030915, end: 20030929
  6. DI-ANTALVIC - (PARACETAMOL/DEXTROPOXYPHENE) - CAPSULE- 1 UNIT [Suspect]
     Dosage: 4 UNIT
     Route: 048
     Dates: start: 20030915, end: 20030929
  7. RIVOTRIL(CLONAZEPAM)DROPS [Suspect]
     Dosage: 0.5 MG TID
     Route: 048
     Dates: start: 20030923, end: 20030929

REACTIONS (8)
  - ALANINE AMINOTRANSFERASE INCREASED [None]
  - ASPARTATE AMINOTRANSFERASE INCREASED [None]
  - BLOOD ALKALINE PHOSPHATASE INCREASED [None]
  - BLOOD AMYLASE INCREASED [None]
  - BLOOD BILIRUBIN INCREASED [None]
  - DRUG LEVEL DECREASED [None]
  - GAMMA-GLUTAMYLTRANSFERASE INCREASED [None]
  - HEAD INJURY [None]
